FAERS Safety Report 19197066 (Version 1)
Quarter: 2021Q2

REPORT INFORMATION
  Report Type: Spontaneous
  Country: US (occurrence: US)
  Receive Date: 20210430
  Receipt Date: 20210430
  Transmission Date: 20210717
  Serious: Yes (Other)
  Sender: FDA-Public Use
  Company Number: US-INSUD PHARMA-2104US00481

PATIENT

DRUGS (3)
  1. NUVESSA [Suspect]
     Active Substance: METRONIDAZOLE
     Indication: SOFT TISSUE INFECTION
     Dosage: UNKNOWN
     Route: 065
  2. LEVOFLOXACIN. [Suspect]
     Active Substance: LEVOFLOXACIN
     Indication: SOFT TISSUE INFECTION
     Dosage: UNKNOWN
     Route: 065
  3. VANCOMYCIN [Suspect]
     Active Substance: VANCOMYCIN
     Indication: SOFT TISSUE INFECTION
     Dosage: UNKNOWN
     Route: 065

REACTIONS (3)
  - Clostridium difficile infection [Unknown]
  - Constipation [Unknown]
  - Diarrhoea [Unknown]
